FAERS Safety Report 4281223-1 (Version None)
Quarter: 2004Q1

REPORT INFORMATION
  Report Type: 
  Country: None (occurrence: None)
  Receive Date: 20040129
  Receipt Date: 20031218
  Transmission Date: 20041129
  Serious: Yes (Life-Threatening, Hospitalization)
  Sender: FDA-Public Use
  Company Number: WAES 0312USA02218

PATIENT
  Age: 54 Year
  Sex: Male

DRUGS (21)
  1. [THERAPY UNSPECIFIED] [Concomitant]
     Indication: SURGERY
     Route: 042
     Dates: start: 20031209
  2. [THERAPY UNSPECIFIED] [Concomitant]
     Indication: POLYURIA
     Route: 042
     Dates: start: 20031209, end: 20031212
  3. [THERAPY UNSPECIFIED] [Concomitant]
     Route: 041
     Dates: start: 20031209, end: 20031210
  4. ADENINE [Concomitant]
     Route: 041
     Dates: start: 20031209, end: 20031210
  5. ALBUMINAR [Concomitant]
     Indication: SURGERY
     Route: 042
     Dates: start: 20031209
  6. ATROPINE SULFATE [Concomitant]
     Indication: SURGERY
     Route: 042
     Dates: start: 20031209
  7. CEFMETAZON [Concomitant]
     Indication: SURGERY
     Route: 042
     Dates: start: 20031209, end: 20031211
  8. TAGAMET [Concomitant]
     Route: 042
     Dates: start: 20031023, end: 20031208
  9. BRIPLATIN [Concomitant]
     Indication: OESOPHAGEAL CARCINOMA
     Route: 042
     Dates: start: 20031020, end: 20031107
  10. PEPCID [Suspect]
     Indication: PROPHYLAXIS
     Route: 042
     Dates: start: 20031209, end: 20031218
  11. FLUOROURACIL [Concomitant]
     Indication: OESOPHAGEAL CARCINOMA
     Route: 042
  12. FOY [Concomitant]
     Indication: SURGERY
     Route: 042
     Dates: start: 20031209, end: 20031211
  13. HETASTARCH [Concomitant]
     Indication: SURGERY
     Route: 042
     Dates: start: 20031209
  14. MANNITOL [Concomitant]
     Route: 041
     Dates: start: 20031209, end: 20031210
  15. CARBOCAIN [Concomitant]
     Indication: ANALGESIC EFFECT
     Dates: start: 20031209, end: 20031212
  16. DORMICUM (MIDAZOLAM) [Concomitant]
     Indication: SURGERY
     Route: 042
     Dates: start: 20031209
  17. NUTRITIONAL SUPPLEMENTS [Concomitant]
     Route: 042
     Dates: start: 20031023, end: 20031208
  18. NUTRITIONAL SUPPLEMENTS [Concomitant]
     Route: 042
     Dates: start: 20031213, end: 20031218
  19. PENTCILLIN [Concomitant]
     Indication: INFECTION PROPHYLAXIS
     Route: 042
     Dates: start: 20031217, end: 20031218
  20. PLASMANATE [Concomitant]
     Indication: FLUID REPLACEMENT
     Route: 042
     Dates: start: 20031209, end: 20031211
  21. MIRACLID [Concomitant]
     Indication: SURGERY
     Dates: start: 20031209, end: 20031209

REACTIONS (2)
  - HEPATOCELLULAR DAMAGE [None]
  - SUTURE RUPTURE [None]
